FAERS Safety Report 24359008 (Version 1)
Quarter: 2024Q3

REPORT INFORMATION
  Report Type: Spontaneous
  Country: US (occurrence: US)
  Receive Date: 20240924
  Receipt Date: 20240924
  Transmission Date: 20241017
  Serious: Yes (Disabling, Other)
  Sender: ELI LILLY AND CO
  Company Number: US-ELI_LILLY_AND_COMPANY-US202409008477

PATIENT
  Age: 57 Year
  Sex: Female

DRUGS (2)
  1. HUMULIN R [Suspect]
     Active Substance: INSULIN HUMAN
     Indication: Product used for unknown indication
     Dosage: 25-45 UNITS PER DAY.
     Route: 065
     Dates: start: 19990911
  2. LANTUS [Concomitant]
     Active Substance: INSULIN GLARGINE
     Indication: Diabetes mellitus
     Dosage: 65-100 UNITS EVERY NIGHT.

REACTIONS (2)
  - Diabetic retinopathy [Unknown]
  - Glaucoma [Unknown]

NARRATIVE: CASE EVENT DATE: 20000605
